FAERS Safety Report 5093499-1 (Version None)
Quarter: 2006Q3

REPORT INFORMATION
  Report Type: 
  Country: None (occurrence: None)
  Receive Date: 20060731
  Receipt Date: 20060201
  Transmission Date: 20061208
  Serious: Yes (Hospitalization)
  Sender: FDA-Public Use
  Company Number: 2006-US-00627

PATIENT
  Age: 76 Year
  Sex: Female
  Weight: 54.4316 kg

DRUGS (5)
  1. ALBUTEROL SULATE [Suspect]
     Indication: ASTHMA
     Dosage: 2 PUFFS QID, INHALATION
     Route: 055
     Dates: start: 20060125
  2. FLUTICASONE PROPIONATE [Concomitant]
  3. MONTELUKAST [Concomitant]
  4. BUPROPION` [Concomitant]
  5. FLUOXETINE HYDROCHLORIDE [Concomitant]

REACTIONS (2)
  - DRUG INEFFECTIVE [None]
  - DYSPNOEA [None]
